FAERS Safety Report 5125096-3 (Version None)
Quarter: 2006Q4

REPORT INFORMATION
  Report Type: 
  Country: None (occurrence: None)
  Receive Date: 20061010
  Receipt Date: 20061010
  Transmission Date: 20070319
  Serious: Yes (Hospitalization)
  Sender: FDA-Public Use
  Company Number: None

PATIENT
  Age: 58 Year
  Sex: Male

DRUGS (12)
  1. SPIRONOLACTONE [Suspect]
     Indication: FLUID RETENTION
     Dosage: 25 MG QD
     Dates: start: 20060818
  2. ASPIRIN [Concomitant]
  3. LORTAB [Concomitant]
  4. OMEPRAZOLE [Concomitant]
  5. GLYBURIDE [Concomitant]
  6. CLARITIN [Concomitant]
  7. ZOCOR [Concomitant]
  8. HYDROCHLOROTHIAZIDE [Concomitant]
  9. METFORMIN HCL [Concomitant]
  10. VALSARTAN [Concomitant]
  11. METOPROLOL TARTRATE [Concomitant]
  12. GABAPENTIN [Concomitant]

REACTIONS (1)
  - HYPERKALAEMIA [None]
